FAERS Safety Report 6170428-0 (Version None)
Quarter: 2009Q2

REPORT INFORMATION
  Report Type: 
  Country: None (occurrence: None)
  Receive Date: 20090428
  Receipt Date: 20090421
  Transmission Date: 20091009
  Serious: Yes (Hospitalization, Other)
  Sender: FDA-Public Use
  Company Number: US-ELI_LILLY_AND_COMPANY-US200904004695

PATIENT
  Sex: Male

DRUGS (2)
  1. HUMALOG [Suspect]
  2. HUMULIN 70/30 [Suspect]

REACTIONS (10)
  - CARDIAC ABLATION [None]
  - CHRONIC OBSTRUCTIVE PULMONARY DISEASE [None]
  - HOSPITALISATION [None]
  - MYOCARDIAL INFARCTION [None]
  - NEPHROLITHIASIS [None]
  - PROSTATE CANCER [None]
  - RADIATION EXPOSURE [None]
  - RENAL FAILURE CHRONIC [None]
  - TERMINAL STATE [None]
  - VASCULAR GRAFT [None]
